FAERS Safety Report 22950721 (Version 10)
Quarter: 2024Q2

REPORT INFORMATION
  Report Type: Spontaneous
  Country: CA (occurrence: CA)
  Receive Date: 20230916
  Receipt Date: 20240606
  Transmission Date: 20240716
  Serious: Yes (Other)
  Sender: FDA-Public Use
  Company Number: CA-CELLTRION INC.-2023CA018046

PATIENT

DRUGS (30)
  1. INFLECTRA [Suspect]
     Active Substance: INFLIXIMAB-DYYB
     Indication: Crohn^s disease
     Dosage: 5 MG/KG, ROUNDED TO CLOSEST VIAL-WEEK 0 DOSE
     Route: 042
     Dates: start: 20190920, end: 20190920
  2. INFLECTRA [Suspect]
     Active Substance: INFLIXIMAB-DYYB
     Dosage: 5 MG/KG, ROUNDED TO NEAREST VIAL - WEEK 2 DOSE
     Route: 042
     Dates: start: 20191004, end: 20191004
  3. INFLECTRA [Suspect]
     Active Substance: INFLIXIMAB-DYYB
     Dosage: 5 MG/KG, ROUNDED TO NEAREST VIAL-WEEK 6 DOSE
     Route: 042
     Dates: start: 20191101, end: 20191101
  4. INFLECTRA [Suspect]
     Active Substance: INFLIXIMAB-DYYB
     Dosage: 5 MG/KG, EVERY 8 WEEKS, ROUNDED TO NEAREST VIAL
     Route: 042
     Dates: start: 20200103, end: 20200103
  5. INFLECTRA [Suspect]
     Active Substance: INFLIXIMAB-DYYB
     Dosage: 7 MG/KG, EVERY 8 WEEKS, 7.5MG/KG
     Route: 042
     Dates: start: 20200228, end: 20200814
  6. INFLECTRA [Suspect]
     Active Substance: INFLIXIMAB-DYYB
     Dosage: 2 MG/KG, ONE TIME DOSE
     Route: 042
     Dates: start: 20200904, end: 20200904
  7. INFLECTRA [Suspect]
     Active Substance: INFLIXIMAB-DYYB
     Dosage: 10 MG/KG, EVERY 6 WEEKS, ROUNDED TO NEAREST VIAL
     Route: 042
     Dates: start: 20200925, end: 20210819
  8. INFLECTRA [Suspect]
     Active Substance: INFLIXIMAB-DYYB
     Dosage: 10 MG/KG, EVERY 5 WEEKS, ROUNDED TO NEAREST VIAL
     Route: 042
     Dates: start: 20210924
  9. INFLECTRA [Suspect]
     Active Substance: INFLIXIMAB-DYYB
     Dosage: 10 MG/KG, EVERY 5 WEEKS, ROUNDED TO NEAREST VIAL
     Route: 042
     Dates: start: 20230818
  10. INFLECTRA [Suspect]
     Active Substance: INFLIXIMAB-DYYB
     Dosage: 10 MG/KG, EVERY 5 WEEKS (1010 MG)
     Route: 042
     Dates: start: 20230922
  11. INFLECTRA [Suspect]
     Active Substance: INFLIXIMAB-DYYB
     Dosage: 10 MG/KG, EVERY 5 WEEKS (1020 MG, AFTER 4 WEEKS AND 6 DAYS)
     Route: 042
     Dates: start: 20231027
  12. INFLECTRA [Suspect]
     Active Substance: INFLIXIMAB-DYYB
     Dosage: 1010 MG, 10MG/KG EVERY 5 WEEKS
     Route: 042
     Dates: start: 20231201
  13. INFLECTRA [Suspect]
     Active Substance: INFLIXIMAB-DYYB
     Dosage: 10 MG/KG, 1020 MG, EVERY 5 WEEK
     Route: 042
     Dates: start: 20240105
  14. INFLECTRA [Suspect]
     Active Substance: INFLIXIMAB-DYYB
     Dosage: 10 MG/KG, EVERY 5 WEEKS, ROUNDED TO NEAREST VIAL (1010MG AFTER 5 WEEKS AND 6 DAYS
     Route: 042
     Dates: start: 20240215
  15. INFLECTRA [Suspect]
     Active Substance: INFLIXIMAB-DYYB
     Dosage: 10 MG/KG, EVERY 5 WEEKS, ROUNDED TO NEAREST VIAL (1040MG AFTER 5 WEEKS)
     Route: 042
     Dates: start: 20240321
  16. INFLECTRA [Suspect]
     Active Substance: INFLIXIMAB-DYYB
     Dosage: 10 MG/KG, EVERY 5 WEEKS
     Route: 042
     Dates: start: 20240426
  17. INFLECTRA [Suspect]
     Active Substance: INFLIXIMAB-DYYB
     Dosage: 10 MG/KG, EVERY 5 WEEKS
     Route: 042
     Dates: start: 20240426
  18. INFLECTRA [Suspect]
     Active Substance: INFLIXIMAB-DYYB
     Dosage: 10 MG/KG, EVERY 5 WEEKS (1040MG AFTER 4 WEEKS AND 6 DAYS)
     Route: 042
     Dates: start: 20240530
  19. BISOPROLOL [Concomitant]
     Active Substance: BISOPROLOL\BISOPROLOL FUMARATE
     Dosage: 1 DF
     Route: 048
  20. CALCIUM [Concomitant]
     Active Substance: CALCIUM
     Dosage: 1 DF
     Route: 048
  21. CHOLECALCIFEROL [Concomitant]
     Active Substance: CHOLECALCIFEROL
     Dosage: 1 DF
     Route: 048
  22. CHOLECALCIFEROL [Concomitant]
     Active Substance: CHOLECALCIFEROL
     Dosage: 1 DF, WEEKLY
     Route: 048
  23. ESCOL [Concomitant]
     Dosage: 1 DF, 1X/DAY, AT BEDTIME
     Route: 048
  24. IVABRADINE [Concomitant]
     Active Substance: IVABRADINE
     Dosage: 1 DF, 2X/DAY
     Route: 048
  25. LOPERAMIDE [Concomitant]
     Active Substance: LOPERAMIDE
     Dosage: 1 DF, 4X/DAY, (4 TIMES DAILY AS NEEDED)
     Route: 048
  26. MAVIK [Concomitant]
     Active Substance: TRANDOLAPRIL
     Dosage: 1 DF
     Route: 048
  27. PANTOPRAZOLE [Concomitant]
     Active Substance: PANTOPRAZOLE
     Dosage: 1 DF, AS NEEDED
     Route: 048
  28. AMOXICILLIN [Concomitant]
     Active Substance: AMOXICILLIN
     Indication: Toothache
     Dosage: 1 DF, DOSAGE IS UNKNOWN
     Route: 065
     Dates: start: 20210226
  29. PROCTOSEDYL [Concomitant]
     Active Substance: DIBUCAINE HYDROCHLORIDE\HYDROCORTISONE
     Dosage: 1 DF
     Route: 054
  30. XARELTO [Concomitant]
     Active Substance: RIVAROXABAN
     Dosage: 1 DF
     Route: 048

REACTIONS (12)
  - Haematochezia [Unknown]
  - Condition aggravated [Not Recovered/Not Resolved]
  - Pneumonia [Unknown]
  - Bronchitis [Unknown]
  - Anal pruritus [Not Recovered/Not Resolved]
  - Anal fissure [Recovered/Resolved]
  - Anorectal discomfort [Not Recovered/Not Resolved]
  - Erythema nodosum [Recovered/Resolved]
  - Arthralgia [Not Recovered/Not Resolved]
  - Tooth abscess [Not Recovered/Not Resolved]
  - Abscess [Recovered/Resolved]
  - Inappropriate schedule of product administration [Unknown]

NARRATIVE: CASE EVENT DATE: 20230101
